FAERS Safety Report 25093589 (Version 3)
Quarter: 2025Q4

REPORT INFORMATION
  Report Type: Report from Study
  Country: CA (occurrence: CA)
  Receive Date: 20250319
  Receipt Date: 20251124
  Transmission Date: 20260118
  Serious: Yes (Other)
  Sender: BIOCON
  Company Number: CA-MIMS-BCONMC-9978

PATIENT

DRUGS (5)
  1. HULIO [Suspect]
     Active Substance: ADALIMUMAB-FKJP
     Indication: Product used for unknown indication
     Dosage: UNK UNK, BIWEEKLY
     Route: 058
     Dates: start: 20241127
  2. HULIO [Suspect]
     Active Substance: ADALIMUMAB-FKJP
  3. HULIO [Suspect]
     Active Substance: ADALIMUMAB-FKJP
  4. HULIO [Suspect]
     Active Substance: ADALIMUMAB-FKJP
  5. HULIO [Suspect]
     Active Substance: ADALIMUMAB-FKJP

REACTIONS (8)
  - Swelling face [Unknown]
  - Lip swelling [Unknown]
  - Eye swelling [Unknown]
  - Adverse event [Unknown]
  - Illness [Unknown]
  - Cough [Unknown]
  - SARS-CoV-2 test positive [Unknown]
  - Pyrexia [Unknown]
